FAERS Safety Report 12128145 (Version 1)
Quarter: 2016Q1

REPORT INFORMATION
  Report Type: Spontaneous
  Country: US (occurrence: US)
  Receive Date: 20160229
  Receipt Date: 20160229
  Transmission Date: 20160526
  Serious: Yes (Death, Hospitalization)
  Sender: FDA-Public Use
  Company Number: US-MYLANLABS-2016M1008459

PATIENT

DRUGS (2)
  1. CISPLATIN. [Suspect]
     Active Substance: CISPLATIN
     Indication: OROPHARYNGEAL CANCER STAGE IV
     Route: 065
  2. CETUXIMAB [Suspect]
     Active Substance: CETUXIMAB
     Indication: OROPHARYNGEAL CANCER STAGE IV
     Dosage: WEEKLY
     Route: 065

REACTIONS (3)
  - Encephalitis brain stem [Recovering/Resolving]
  - Varicella zoster virus infection [Fatal]
  - Skin lesion [Unknown]

NARRATIVE: CASE EVENT DATE: 201503
